FAERS Safety Report 25410585 (Version 2)
Quarter: 2025Q3

REPORT INFORMATION
  Report Type: Spontaneous
  Country: EU (occurrence: EU)
  Receive Date: 20250608
  Receipt Date: 20250704
  Transmission Date: 20251020
  Serious: Yes (Life-Threatening, Other)
  Sender: ABBVIE
  Company Number: EU-ABBVIE-6306472

PATIENT
  Age: 33 Year
  Sex: Male

DRUGS (2)
  1. HUMIRA [Suspect]
     Active Substance: ADALIMUMAB
     Indication: Rheumatoid arthritis
     Route: 058
     Dates: start: 200503, end: 20131206
  2. DICLOFENAC [Concomitant]
     Active Substance: DICLOFENAC
     Indication: Product used for unknown indication
     Dosage: IF NEEDED

REACTIONS (58)
  - Blood glucose fluctuation [Unknown]
  - Upper respiratory tract infection [Recovered/Resolved]
  - Internal haemorrhage [Unknown]
  - Rash macular [Unknown]
  - Self-medication [Unknown]
  - Pain [Unknown]
  - Loss of personal independence in daily activities [Unknown]
  - Depression [Unknown]
  - Osteomyelitis [Recovered/Resolved]
  - Rheumatoid arthritis [Unknown]
  - Gingivitis [Recovered/Resolved]
  - Sleep apnoea syndrome [Recovered/Resolved]
  - Rash [Recovered/Resolved]
  - Rectal haemorrhage [Recovered/Resolved]
  - Abdominal pain [Recovered/Resolved]
  - Nervous system disorder [Recovered/Resolved]
  - Cutaneous vasculitis [Unknown]
  - Infection susceptibility increased [Not Recovered/Not Resolved]
  - Skin disorder [Unknown]
  - Wound complication [Unknown]
  - Skin graft [Unknown]
  - Wound [Unknown]
  - Wisdom teeth removal [Unknown]
  - Vascular operation [Recovered/Resolved]
  - Vascular operation [Unknown]
  - Hyperglycaemia [Unknown]
  - Disturbance in attention [Unknown]
  - Hepatic enzyme abnormal [Unknown]
  - Nausea [Unknown]
  - Memory impairment [Unknown]
  - Body temperature decreased [Unknown]
  - Lower respiratory tract infection [Unknown]
  - Sinusitis [Unknown]
  - Pharyngitis [Unknown]
  - Nasopharyngitis [Unknown]
  - Nasal congestion [Unknown]
  - Pharyngeal oedema [Unknown]
  - Yellow skin [Unknown]
  - Skin discolouration [Unknown]
  - Eczema [Unknown]
  - Herpes zoster [Unknown]
  - Necrotising fasciitis [Unknown]
  - Gastrointestinal haemorrhage [Unknown]
  - Gastrointestinal disorder [Unknown]
  - Gastrooesophageal reflux disease [Unknown]
  - Abdominal distension [Unknown]
  - Mental impairment [Unknown]
  - Neuropathy peripheral [Unknown]
  - Enthesopathy [Unknown]
  - Nightmare [Unknown]
  - Dizziness [Unknown]
  - Mood swings [Unknown]
  - Affect lability [Unknown]
  - Multiple allergies [Unknown]
  - Thrombocytopenic purpura [Unknown]
  - Lupus-like syndrome [Unknown]
  - Vasculitis [Unknown]
  - Skin infection [Unknown]

NARRATIVE: CASE EVENT DATE: 20050301
